FAERS Safety Report 6378715-8 (Version None)
Quarter: 2009Q3

REPORT INFORMATION
  Report Type: 
  Country: None (occurrence: None)
  Receive Date: 20090923
  Receipt Date: 20090914
  Transmission Date: 20100115
  Serious: Yes (Other)
  Sender: FDA-Public Use
  Company Number: 20090397

PATIENT
  Age: 42 Year
  Sex: Female
  Weight: 112.4921 kg

DRUGS (1)
  1. DEXFERRUM [Suspect]
     Indication: ANAEMIA
     Dosage: 25 MG INTRAVENOUS
     Route: 042
     Dates: start: 20090905, end: 20090905

REACTIONS (3)
  - ANAPHYLACTOID REACTION [None]
  - CHEST DISCOMFORT [None]
  - PALPITATIONS [None]
